FAERS Safety Report 9475913 (Version 1)
Quarter: 2013Q3

REPORT INFORMATION
  Report Type: Spontaneous
  Country: PL (occurrence: PL)
  Receive Date: 20130826
  Receipt Date: 20130826
  Transmission Date: 20140515
  Serious: Yes (Hospitalization, Other)
  Sender: FDA-Public Use
  Company Number: PL-UCBSA-096013

PATIENT
  Age: 27 Year
  Sex: Female

DRUGS (11)
  1. NITROGLYCERIN [Suspect]
     Route: 042
     Dates: start: 2010
  2. FUROSEMIDE [Concomitant]
     Route: 042
     Dates: start: 201005, end: 2010
  3. ESOMEPRAZOLE [Concomitant]
     Route: 042
     Dates: start: 201005
  4. MEROPENEM [Concomitant]
     Dates: start: 201005
  5. OXAZOLIDINONE [Concomitant]
     Dates: start: 201005
  6. HYDROCORTISONE [Concomitant]
     Dates: start: 201005
  7. BISOPROLOL [Concomitant]
     Dates: start: 201005
  8. CLINDAMYCIN [Concomitant]
     Route: 042
     Dates: start: 2010
  9. CEPHAPERAZONE [Concomitant]
     Route: 042
     Dates: start: 2010
  10. AMOXICILLIN AND CLAVULANIC ACID [Concomitant]
     Indication: PYREXIA
     Route: 042
     Dates: start: 201005
  11. PARACETAMOL [Concomitant]
     Indication: PYREXIA
     Dates: start: 201005

REACTIONS (4)
  - Premature rupture of membranes [Unknown]
  - Urinary tract infection [Unknown]
  - Upper respiratory tract infection [Unknown]
  - Exposure during pregnancy [Recovered/Resolved]
